FAERS Safety Report 22014447 (Version 1)
Quarter: 2023Q1

REPORT INFORMATION
  Report Type: Spontaneous
  Country: US (occurrence: US)
  Receive Date: 20230221
  Receipt Date: 20230221
  Transmission Date: 20230417
  Serious: Yes (Hospitalization)
  Sender: FDA-Public Use
  Company Number: US-BIOCODEX2-2023000164

PATIENT
  Sex: Female
  Weight: 25.4 kg

DRUGS (2)
  1. DIACOMIT [Suspect]
     Active Substance: STIRIPENTOL
     Indication: Epilepsy
     Dosage: GIVE 10 ML (500 MG) VIA J-TUBE THREE TIMES A DAY
     Route: 065
     Dates: start: 20220804
  2. CLOBAZAM [Concomitant]
     Active Substance: CLOBAZAM
     Indication: Product used for unknown indication
     Route: 065

REACTIONS (2)
  - Respiratory syncytial virus infection [Unknown]
  - Product use in unapproved indication [Unknown]
